FAERS Safety Report 6912985-X (Version None)
Quarter: 2010Q3

REPORT INFORMATION
  Report Type: 
  Country: None (occurrence: None)
  Receive Date: 20100806
  Receipt Date: 20090519
  Transmission Date: 20110219
  Serious: No
  Sender: FDA-Public Use
  Company Number: US-PFIZER INC-2009153240

PATIENT
  Sex: Male
  Weight: 81.6 kg

DRUGS (2)
  1. GLUCOTROL XL [Suspect]
     Dosage: 2.5 MG, 1X/DAY
     Dates: start: 20071015
  2. PRILOSEC [Concomitant]
     Dosage: 20 MG, 1X/DAY

REACTIONS (1)
  - BLOOD GLUCOSE INCREASED [None]
